FAERS Safety Report 9234959 (Version 2)
Quarter: 2013Q3

REPORT INFORMATION
  Report Type: Spontaneous
  Country: FR (occurrence: FR)
  Receive Date: 20130416
  Receipt Date: 20130724
  Transmission Date: 20140515
  Serious: Yes (Hospitalization)
  Sender: FDA-Public Use
  Company Number: FR-PFIZER INC-2013115277

PATIENT
  Age: 60 Year
  Sex: Male

DRUGS (7)
  1. TRIATEC [Suspect]
     Indication: HYPERTENSION
     Dosage: 2.5 MG, DAILY
     Route: 048
     Dates: end: 20130310
  2. CERTICAN [Suspect]
     Indication: COMPLICATIONS OF TRANSPLANTED KIDNEY
     Dosage: UNK
     Route: 048
     Dates: start: 20130305, end: 20130309
  3. KARDEGIC [Concomitant]
     Dosage: UNK
  4. EFIENT [Concomitant]
     Dosage: UNK
  5. CRESTOR [Concomitant]
     Dosage: UNK
  6. CALCIDIA [Concomitant]
     Dosage: UNK
  7. NEORAL [Concomitant]
     Dosage: UNK

REACTIONS (3)
  - Angioedema [Recovering/Resolving]
  - Dyspnoea [Unknown]
  - Dysarthria [Unknown]
